FAERS Safety Report 12106137 (Version 1)
Quarter: 2016Q1

REPORT INFORMATION
  Report Type: Spontaneous
  Country: US (occurrence: US)
  Receive Date: 20160223
  Receipt Date: 20160223
  Transmission Date: 20160526
  Serious: No
  Sender: FDA-Public Use
  Company Number: US-009507513-1602USA007106

PATIENT
  Age: 82 Year
  Sex: Female

DRUGS (2)
  1. INTRON A [Suspect]
     Active Substance: INTERFERON ALFA-2B
     Indication: NEOPLASM MALIGNANT
     Dosage: 0.4 ML, 3 TIMES PER WEEK
     Route: 058
  2. SPIRONOLACTONE. [Concomitant]
     Active Substance: SPIRONOLACTONE

REACTIONS (13)
  - Nausea [Unknown]
  - Vomiting [Unknown]
  - Decreased appetite [Unknown]
  - Cough [Unknown]
  - Haemorrhoidal haemorrhage [Unknown]
  - Dry mouth [Unknown]
  - Cheilitis [Unknown]
  - Depression [Unknown]
  - Decreased interest [Unknown]
  - Diarrhoea [Unknown]
  - Fatigue [Unknown]
  - Rash erythematous [Unknown]
  - Weight decreased [Unknown]
